FAERS Safety Report 4353104-6 (Version None)
Quarter: 2004Q2

REPORT INFORMATION
  Report Type: 
  Country: None (occurrence: None)
  Receive Date: 20040429
  Receipt Date: 20040416
  Transmission Date: 20050107
  Serious: Yes (Death)
  Sender: FDA-Public Use
  Company Number: 2002AP03339

PATIENT
  Age: 8 Year
  Sex: Female

DRUGS (17)
  1. DIPRIVAN [Suspect]
     Indication: SEDATIVE THERAPY
     Dosage: 2178 MG DAILY IVD
     Dates: start: 20020802, end: 20020803
  2. BISOLVON [Concomitant]
  3. FLUMARIN [Concomitant]
  4. FIRSTCIN [Concomitant]
  5. MIDAZOLAM HCL [Concomitant]
  6. GASTER [Concomitant]
  7. SEVOFRANE [Concomitant]
  8. FENTANYL [Concomitant]
  9. KETALAR [Concomitant]
  10. MUSCULAX [Concomitant]
  11. INOVAN [Concomitant]
  12. ATROPINE SULFATE [Concomitant]
  13. ROPION [Concomitant]
  14. ADONA (AC-17) [Concomitant]
  15. TRANSAMIN [Concomitant]
  16. NEOPHYLLIN [Concomitant]
  17. FESIN [Concomitant]

REACTIONS (18)
  - ALANINE AMINOTRANSFERASE INCREASED [None]
  - ARRHYTHMIA [None]
  - ASPARTATE AMINOTRANSFERASE INCREASED [None]
  - BRAIN STEM ISCHAEMIA [None]
  - CEREBRAL ISCHAEMIA [None]
  - CLONUS [None]
  - ENCEPHALOPATHY [None]
  - HAEMODIALYSIS [None]
  - HAEMODYNAMIC INSTABILITY [None]
  - HYPOKALAEMIA [None]
  - HYPOPERFUSION [None]
  - HYPOTENSION [None]
  - INJURY [None]
  - LIVER DISORDER [None]
  - OLIGURIA [None]
  - PULMONARY HYPERTENSION [None]
  - RHABDOMYOLYSIS [None]
  - VENTRICULAR EXTRASYSTOLES [None]
